FAERS Safety Report 5265314-4 (Version None)
Quarter: 2007Q1

REPORT INFORMATION
  Report Type: 
  Country: None (occurrence: None)
  Receive Date: 20070314
  Receipt Date: 20070308
  Transmission Date: 20070707
  Serious: Yes (Other)
  Sender: FDA-Public Use
  Company Number: GB-SHR-GB-2007-008381

PATIENT
  Age: 63 Year
  Sex: Female

DRUGS (2)
  1. ULTRAVIST 300 [Suspect]
  2. MIMPARA [Concomitant]
     Indication: HYPERPARATHYROIDISM SECONDARY
     Dosage: 30 MG, UNK
     Route: 048
     Dates: start: 20060711

REACTIONS (1)
  - STEVENS-JOHNSON SYNDROME [None]
